FAERS Safety Report 6430408-4 (Version None)
Quarter: 2009Q4

REPORT INFORMATION
  Report Type: 
  Country: None (occurrence: None)
  Receive Date: 20091106
  Receipt Date: 20091027
  Transmission Date: 20100525
  Serious: Yes (Other)
  Sender: FDA-Public Use
  Company Number: US-ELI_LILLY_AND_COMPANY-US200909000324

PATIENT
  Age: 51 Year
  Sex: Female

DRUGS (2)
  1. GEMZAR [Suspect]
     Indication: PANCREATIC CARCINOMA
     Dosage: UNK, OTHER
     Route: 042
  2. ANTIEMETICS AND ANTINAUSEANTS [Concomitant]

REACTIONS (18)
  - ACNE [None]
  - CONSTIPATION [None]
  - COUGH [None]
  - DIZZINESS [None]
  - DYSPNOEA [None]
  - FATIGUE [None]
  - HEADACHE [None]
  - HYPERAESTHESIA [None]
  - INJECTION SITE IRRITATION [None]
  - INJECTION SITE PAIN [None]
  - LUNG DISORDER [None]
  - MUSCULAR WEAKNESS [None]
  - NAUSEA [None]
  - PAIN OF SKIN [None]
  - PHOTOPHOBIA [None]
  - RED BLOOD CELL COUNT DECREASED [None]
  - VISION BLURRED [None]
  - VOMITING [None]
